FAERS Safety Report 6575444-2 (Version None)
Quarter: 2010Q1

REPORT INFORMATION
  Report Type: 
  Country: None (occurrence: None)
  Receive Date: 20100202
  Receipt Date: 20100118
  Transmission Date: 20100710
  Serious: Yes (Death)
  Sender: FDA-Public Use
  Company Number: 2010S1000025

PATIENT
  Age: 61 Year
  Sex: Male

DRUGS (8)
  1. ROXICODONE [Suspect]
     Dosage: ; PO
     Route: 048
     Dates: end: 20080101
  2. DARVOCET-N 100 [Suspect]
     Dosage: ; PO
     Route: 048
     Dates: end: 20080101
  3. STRYCHNINE [Suspect]
     Dosage: ; PO
     Route: 048
     Dates: end: 20080101
  4. HYDROCODONE BITARTRATE AND ACETAMINOPHEN [Suspect]
     Dosage: ; PO
     Route: 048
     Dates: end: 20080101
  5. ARSENIC [Suspect]
     Dosage: ; PO
     Route: 048
     Dates: end: 20080101
  6. TRAZODONE [Suspect]
     Dosage: ; PO
     Route: 048
     Dates: end: 20080101
  7. ETHANOL [Suspect]
     Dosage: ; PO
     Route: 048
     Dates: end: 20080101
  8. ACETAMINOPHEN-PSEUDOEPHEDRINE [Suspect]
     Dosage: ; PO
     Route: 048
     Dates: end: 20080101

REACTIONS (10)
  - BLOOD PRESSURE SYSTOLIC INCREASED [None]
  - CARDIAC ARREST [None]
  - COMPLETED SUICIDE [None]
  - DELIRIUM [None]
  - HAEMATEMESIS [None]
  - HAEMATURIA [None]
  - HYPERHIDROSIS [None]
  - MUSCLE SPASMS [None]
  - SOMNOLENCE [None]
  - TREMOR [None]
